FAERS Safety Report 20445675 (Version 1)
Quarter: 2022Q1

REPORT INFORMATION
  Report Type: Spontaneous
  Country: US (occurrence: None)
  Receive Date: 20220208
  Receipt Date: 20220208
  Transmission Date: 20220423
  Serious: No
  Sender: FDA-Public Use
  Company Number: None

PATIENT
  Age: 73 Year
  Sex: Female
  Weight: 64.35 kg

DRUGS (1)
  1. IMATINIB [Suspect]
     Active Substance: IMATINIB
     Indication: Gastric cancer
     Dosage: FREQUENCY : DAILY;?
     Route: 048

REACTIONS (2)
  - Skin disorder [None]
  - Skin discolouration [None]

NARRATIVE: CASE EVENT DATE: 20220208
